FAERS Safety Report 22382665 (Version 1)
Quarter: 2023Q2

REPORT INFORMATION
  Report Type: Spontaneous
  Country: US (occurrence: None)
  Receive Date: 20230526
  Receipt Date: 20230526
  Transmission Date: 20230721
  Serious: No
  Sender: FDA-Public Use
  Company Number: None

PATIENT
  Age: 50 Year
  Sex: Male

DRUGS (1)
  1. COSENTYX [Suspect]
     Active Substance: SECUKINUMAB
     Indication: Ankylosing spondylitis
     Route: 058
     Dates: start: 202305

REACTIONS (5)
  - Nasopharyngitis [None]
  - Nasal congestion [None]
  - Oropharyngeal pain [None]
  - Rhinorrhoea [None]
  - Gastric disorder [None]
